FAERS Safety Report 15995179 (Version 1)
Quarter: 2019Q1

REPORT INFORMATION
  Report Type: Spontaneous
  Country: US (occurrence: US)
  Receive Date: 20190222
  Receipt Date: 20190222
  Transmission Date: 20190418
  Serious: Yes (Life-Threatening, Hospitalization, Other)
  Sender: FDA-Public Use
  Company Number: US-AMGEN-USASP2019025057

PATIENT
  Age: 99 Year
  Sex: Female

DRUGS (2)
  1. SENSIPAR [Suspect]
     Active Substance: CINACALCET HYDROCHLORIDE
     Indication: HYPERPARATHYROIDISM PRIMARY
     Dosage: 60 MG, QD
     Route: 065
     Dates: start: 2004
  2. SENSIPAR [Suspect]
     Active Substance: CINACALCET HYDROCHLORIDE
     Dosage: 30 MG IN MORNING AND 15 MG  IN THE EVENING BID
     Route: 065

REACTIONS (13)
  - Pathogen resistance [Unknown]
  - Weight decreased [Unknown]
  - Scab [Unknown]
  - Lethargy [Unknown]
  - Road traffic accident [Unknown]
  - Generalised tonic-clonic seizure [Unknown]
  - Asthenia [Unknown]
  - Staphylococcal infection [Unknown]
  - Product dose omission [Unknown]
  - Limb crushing injury [Unknown]
  - Osteomyelitis [Unknown]
  - Wrong technique in product usage process [Unknown]
  - Incorrect dose administered [Unknown]

NARRATIVE: CASE EVENT DATE: 20190212
